FAERS Safety Report 17278861 (Version 1)
Quarter: 2020Q1

REPORT INFORMATION
  Report Type: Spontaneous
  Country: FR (occurrence: FR)
  Receive Date: 20200116
  Receipt Date: 20200116
  Transmission Date: 20200409
  Serious: Yes (Other)
  Sender: FDA-Public Use
  Company Number: NVSC2020FR009159

PATIENT
  Sex: Male

DRUGS (1)
  1. GLIVEC [Suspect]
     Active Substance: IMATINIB MESYLATE
     Indication: GASTROINTESTINAL STROMAL TUMOUR
     Dosage: 400 MG, QD
     Route: 065
     Dates: start: 2016, end: 201906

REACTIONS (6)
  - Pelvic fracture [Unknown]
  - Raynaud^s phenomenon [Unknown]
  - Muscle rigidity [Unknown]
  - Foot fracture [Unknown]
  - Bone decalcification [Unknown]
  - Oedema [Unknown]
